FAERS Safety Report 6408433-9 (Version None)
Quarter: 2009Q4

REPORT INFORMATION
  Report Type: 
  Country: None (occurrence: None)
  Receive Date: 20091021
  Receipt Date: 20091019
  Transmission Date: 20100525
  Serious: Yes (Other)
  Sender: FDA-Public Use
  Company Number: US-BRISTOL-MYERS SQUIBB COMPANY-14821300

PATIENT
  Age: 18 Year
  Sex: Male
  Weight: 70 kg

DRUGS (6)
  1. ABILIFY [Suspect]
     Indication: BIPOLAR DISORDER
     Dosage: DOSE REDUCED TO 15MG
  2. PLAVIX [Suspect]
  3. SINGULAIR [Suspect]
  4. DEPAKOTE [Suspect]
  5. RITALIN [Suspect]
     Route: 045
  6. PROTONIX [Concomitant]

REACTIONS (2)
  - GASTRIC HAEMORRHAGE [None]
  - VOMITING [None]
